FAERS Safety Report 21353226 (Version 2)
Quarter: 2022Q4

REPORT INFORMATION
  Report Type: Spontaneous
  Country: US (occurrence: US)
  Receive Date: 20220920
  Receipt Date: 20221215
  Transmission Date: 20230112
  Serious: No
  Sender: FDA-Public Use
  Company Number: US-SUN PHARMACEUTICAL INDUSTRIES LTD-2022R1-354282

PATIENT
  Age: 37 Year
  Sex: Female

DRUGS (1)
  1. WINLEVI [Suspect]
     Active Substance: CLASCOTERONE
     Indication: Acne
     Dosage: UNK, OD IN THE AM
     Route: 061
     Dates: start: 20220711, end: 20220901

REACTIONS (4)
  - Poor quality product administered [Unknown]
  - Product physical consistency issue [Unknown]
  - Skin irritation [Recovered/Resolved]
  - Erythema [Recovered/Resolved]

NARRATIVE: CASE EVENT DATE: 20220901
